FAERS Safety Report 7095666-4 (Version None)
Quarter: 2010Q4

REPORT INFORMATION
  Report Type: 
  Country: None (occurrence: None)
  Receive Date: 20101111
  Receipt Date: 20090114
  Transmission Date: 20110411
  Serious: Yes (Other)
  Sender: FDA-Public Use
  Company Number: US-KINGPHARMUSA00001-K200900030

PATIENT
  Sex: Female

DRUGS (1)
  1. SKELAXIN [Suspect]
     Dosage: UNK, SINGLE
     Route: 048
     Dates: start: 20080701, end: 20080701

REACTIONS (3)
  - PHARYNGEAL OEDEMA [None]
  - RASH GENERALISED [None]
  - SWELLING FACE [None]
